FAERS Safety Report 5475892-8 (Version None)
Quarter: 2007Q4

REPORT INFORMATION
  Report Type: 
  Country: None (occurrence: None)
  Receive Date: 20071003
  Receipt Date: 20070926
  Transmission Date: 20080405
  Serious: Yes (Hospitalization)
  Sender: FDA-Public Use
  Company Number: PHBS2007JP04300

PATIENT
  Age: 39 Year
  Sex: Male

DRUGS (4)
  1. NEORAL [Suspect]
     Indication: RENAL TRANSPLANT
     Dosage: 200 MG/D
     Route: 048
     Dates: start: 20061010, end: 20061110
  2. DENOSINE ^TANABE^ [Suspect]
     Dosage: 500 MG/D
     Route: 042
     Dates: start: 20061010, end: 20061011
  3. PROGRAF [Concomitant]
     Indication: RENAL TRANSPLANT
     Dosage: 8 MG/D
     Route: 048
     Dates: start: 20061111
  4. CELLCEPT [Concomitant]
     Indication: RENAL TRANSPLANT
     Dosage: 1.5 G/D
     Route: 048
     Dates: start: 20061007

REACTIONS (9)
  - CALCULUS URETERIC [None]
  - COMPLICATIONS OF TRANSPLANTED KIDNEY [None]
  - DIALYSIS [None]
  - HYDRONEPHROSIS [None]
  - NEPHROPATHY TOXIC [None]
  - NEPHROSTOMY [None]
  - OLIGURIA [None]
  - POSTRENAL FAILURE [None]
  - URETERIC ANASTOMOSIS COMPLICATION [None]
